FAERS Safety Report 12738553 (Version 2)
Quarter: 2016Q3

REPORT INFORMATION
  Report Type: Spontaneous
  Country: US (occurrence: US)
  Receive Date: 20160913
  Receipt Date: 20160927
  Transmission Date: 20161109
  Serious: No
  Sender: FDA-Public Use
  Company Number: US-ACTELION-A-US2016-141977

PATIENT
  Age: 38 Year
  Sex: Female
  Weight: 63.49 kg

DRUGS (4)
  1. UPTRAVI [Suspect]
     Active Substance: SELEXIPAG
     Indication: PULMONARY ARTERIAL HYPERTENSION
     Dosage: 400 MCG, BID
     Route: 048
     Dates: start: 20160818
  2. WARFARIN [Concomitant]
     Active Substance: WARFARIN
  3. UPTRAVI [Suspect]
     Active Substance: SELEXIPAG
     Dosage: 600 MCG, BID
     Route: 048
     Dates: start: 20160903
  4. ADCIRCA [Concomitant]
     Active Substance: TADALAFIL

REACTIONS (4)
  - Vomiting [Unknown]
  - Nausea [Unknown]
  - Pain [Unknown]
  - Headache [Unknown]

NARRATIVE: CASE EVENT DATE: 20160903
